FAERS Safety Report 5682470-4 (Version None)
Quarter: 2008Q1

REPORT INFORMATION
  Report Type: 
  Country: None (occurrence: None)
  Receive Date: 20080326
  Receipt Date: 20080326
  Transmission Date: 20080703
  Serious: Yes (Hospitalization)
  Sender: FDA-Public Use
  Company Number: None

PATIENT
  Age: 36 Year
  Sex: Male
  Weight: 90.7194 kg

DRUGS (3)
  1. SEROQUEL [Suspect]
     Indication: DEPRESSION
     Dates: start: 19951201, end: 19960215
  2. GEODON [Suspect]
  3. PROZAC [Suspect]
     Dosage: DAILY

REACTIONS (3)
  - IRRITABILITY [None]
  - PAIN [None]
  - URINARY INCONTINENCE [None]
